FAERS Safety Report 23991385 (Version 3)
Quarter: 2024Q3

REPORT INFORMATION
  Report Type: Spontaneous
  Country: US (occurrence: US)
  Receive Date: 20240619
  Receipt Date: 20240701
  Transmission Date: 20241017
  Serious: Yes (Other)
  Sender: PFIZER
  Company Number: US-PFIZER INC-202400195065

PATIENT
  Age: 32 Year
  Sex: Male

DRUGS (2)
  1. VELSIPITY [Suspect]
     Active Substance: ETRASIMOD ARGININE
     Dosage: UNK
     Route: 048
     Dates: start: 20240616
  2. VELSIPITY [Suspect]
     Active Substance: ETRASIMOD ARGININE
     Dosage: 2 MG
     Route: 048

REACTIONS (6)
  - Heart rate decreased [Unknown]
  - Condition aggravated [Unknown]
  - Asthenia [Unknown]
  - Headache [Unknown]
  - Dizziness [Unknown]
  - Influenza [Unknown]

NARRATIVE: CASE EVENT DATE: 20240601
